FAERS Safety Report 8522759-4 (Version None)
Quarter: 2012Q3

REPORT INFORMATION
  Report Type: 
  Country: None (occurrence: None)
  Receive Date: 20120719
  Receipt Date: 20120709
  Transmission Date: 20120928
  Serious: Yes (Hospitalization)
  Sender: FDA-Public Use
  Company Number: GB-009507513-1206USA04050

PATIENT

DRUGS (8)
  1. ASPIRIN [Concomitant]
     Dosage: 75 MG, QD
  2. ATORVASTATIN [Concomitant]
     Dosage: 40 MG, QD
  3. IRBESARTAN [Concomitant]
     Dosage: 150 MG, QD
  4. MK-9359 [Concomitant]
     Dosage: 50 MG, QD
  5. AMLODIPINE [Concomitant]
     Dosage: 5 MG, QD
  6. MK-9025 [Concomitant]
     Dosage: UNK UNK, PRN
  7. ZETIA [Suspect]
     Dosage: 10 MG, QD
     Route: 048
     Dates: end: 20110101
  8. AMILORIDE HYDROCHLORIDE (+) FUROSEMIDE [Concomitant]

REACTIONS (1)
  - ANGINA PECTORIS [None]
